FAERS Safety Report 9806091 (Version 1)
Quarter: 2014Q1

REPORT INFORMATION
  Report Type: Spontaneous
  Country: DE (occurrence: DE)
  Receive Date: 20140109
  Receipt Date: 20140109
  Transmission Date: 20141002
  Serious: Yes (Disabling)
  Sender: FDA-Public Use
  Company Number: GXKR2014DE000458

PATIENT
  Age: 66 Year
  Sex: Female

DRUGS (6)
  1. MINOCYCLINE [Suspect]
     Indication: BORRELIA INFECTION
     Dosage: DAILY DOSE: 200 MG MILLGRAM(S) EVERY DAYS
     Route: 048
     Dates: start: 20090831, end: 20091002
  2. CIRCADIN [Concomitant]
     Indication: INSOMNIA
     Dosage: 1 DF, QD
     Route: 048
     Dates: start: 20101123, end: 20101126
  3. LAFAMME [Concomitant]
     Dosage: 1 DF, QD
     Route: 048
  4. BISOPROLOL [Concomitant]
     Dosage: 5 MG, PRN
     Route: 048
  5. ARLEVERT [Concomitant]
     Indication: DIZZINESS
     Dosage: 1 DF, TID
     Route: 048
     Dates: start: 20100520, end: 20100525
  6. MYOSON DIRECT [Concomitant]
     Indication: MYALGIA
     Dosage: 1 DF, TID
     Route: 048
     Dates: start: 20100618, end: 20100627

REACTIONS (11)
  - Abnormal sensation in eye [Not Recovered/Not Resolved]
  - Arthralgia [Recovered/Resolved]
  - Back pain [Recovered/Resolved]
  - Dizziness [Recovered/Resolved]
  - Fatigue [Not Recovered/Not Resolved]
  - Glossodynia [Recovered/Resolved with Sequelae]
  - Hyperhidrosis [Recovered/Resolved]
  - Neck pain [Recovered/Resolved]
  - Headache [Not Recovered/Not Resolved]
  - Headache [Recovering/Resolving]
  - Visual acuity reduced [Recovered/Resolved]
